FAERS Safety Report 12668774 (Version 1)
Quarter: 2016Q3

REPORT INFORMATION
  Report Type: Report from Study
  Country: BR (occurrence: BR)
  Receive Date: 20160819
  Receipt Date: 20160819
  Transmission Date: 20161109
  Serious: Yes (Other)
  Sender: FDA-Public Use
  Company Number: PHHY2016BR113672

PATIENT
  Sex: Female

DRUGS (1)
  1. ACLASTA [Suspect]
     Active Substance: ZOLEDRONIC ACID
     Indication: PRODUCT USED FOR UNKNOWN INDICATION
     Route: 065

REACTIONS (7)
  - Psoriasis [Unknown]
  - Hypertension [Unknown]
  - Dementia Alzheimer^s type [Unknown]
  - Peripheral swelling [Unknown]
  - Pain [Unknown]
  - Osteoporosis [Unknown]
  - Arthritis [Unknown]

NARRATIVE: CASE EVENT DATE: 201601
